FAERS Safety Report 26112045 (Version 1)
Quarter: 2025Q4

REPORT INFORMATION
  Report Type: Spontaneous
  Country: US (occurrence: US)
  Receive Date: 20251202
  Receipt Date: 20251202
  Transmission Date: 20260117
  Serious: No
  Sender: Otter
  Company Number: US-OTTER-US-2025AST000376

PATIENT
  Age: 7 Year
  Sex: Female

DRUGS (1)
  1. OTREXUP [Suspect]
     Active Substance: METHOTREXATE
     Indication: Dermatomyositis
     Dosage: UNK
     Route: 065

REACTIONS (1)
  - Off label use [Unknown]
